FAERS Safety Report 5873535-2 (Version None)
Quarter: 2008Q3

REPORT INFORMATION
  Report Type: 
  Country: None (occurrence: None)
  Receive Date: 20080829
  Receipt Date: 20080819
  Transmission Date: 20090109
  Serious: Yes (Hospitalization, Other)
  Sender: FDA-Public Use
  Company Number: GXKR2008GB07867

PATIENT
  Age: 14 Year
  Sex: Male
  Weight: 34 kg

DRUGS (10)
  1. AZATHIOPRINE [Suspect]
     Indication: CROHN'S DISEASE
     Dosage: 25 MG, QD, ORAL
     Route: 048
  2. HYDROCORTISONE [Suspect]
     Indication: CROHN'S DISEASE
     Dosage: INTRAVENOUS
     Route: 042
  3. REMICADE [Suspect]
     Indication: CROHN'S DISEASE
     Dosage: 160 MG, INTRAVENOUS
     Route: 042
  4. HYDROCORTISONE [Concomitant]
  5. MEBEVERINE (MEBEVERINE) [Concomitant]
  6. GENTAMICIN SULFATE [Concomitant]
  7. OMEPRAZOLE [Concomitant]
  8. POTASSIUM (POTASSIUM) [Concomitant]
  9. PREDNISONE [Concomitant]
  10. PYRIDOXINE HYDROCLORIDE (PYRIDOXINE HYDROCHLORIDE) [Concomitant]

REACTIONS (7)
  - CONDITION AGGRAVATED [None]
  - CROHN'S DISEASE [None]
  - ENCEPHALITIS [None]
  - ENCEPHALOPATHY [None]
  - GRAND MAL CONVULSION [None]
  - LEUKOENCEPHALOPATHY [None]
  - VISUAL IMPAIRMENT [None]
